FAERS Safety Report 16835890 (Version 2)
Quarter: 2021Q4

REPORT INFORMATION
  Report Type: Spontaneous
  Country: None (occurrence: US)
  Receive Date: 20190920
  Receipt Date: 20211101
  Transmission Date: 20220303
  Serious: Yes (Hospitalization)
  Sender: FDA-Public Use
  Company Number: US-AKCEA THERAPEUTICS-2019IS001698

PATIENT
  Age: 72 Year
  Sex: Female

DRUGS (9)
  1. TEGSEDI [Suspect]
     Active Substance: INOTERSEN SODIUM
     Indication: Hereditary neuropathic amyloidosis
     Route: 058
  2. DEVICE [Suspect]
     Active Substance: DEVICE
  3. METOLAZONE [Concomitant]
     Active Substance: METOLAZONE
     Route: 048
  4. VITAMIN B12 [Concomitant]
     Active Substance: CYANOCOBALAMIN
     Route: 048
  5. RETINOL [Concomitant]
     Active Substance: RETINOL
     Route: 048
  6. PANTOPRAZOLE SODIUM [Concomitant]
     Active Substance: PANTOPRAZOLE SODIUM
     Route: 048
  7. LASIX [Concomitant]
     Active Substance: FUROSEMIDE
     Route: 048
  8. POTASSIUM CHLORIDE [Concomitant]
     Active Substance: POTASSIUM CHLORIDE
     Route: 048
  9. MULTIVITAMIN ACTIVE WOMAN 55+ [Concomitant]
     Route: 048

REACTIONS (1)
  - Cerebrovascular accident [Recovered/Resolved]

NARRATIVE: CASE EVENT DATE: 20190906
